FAERS Safety Report 8510954-X (Version None)
Quarter: 2012Q3

REPORT INFORMATION
  Report Type: 
  Country: None (occurrence: None)
  Receive Date: 20120716
  Receipt Date: 20120711
  Transmission Date: 20120928
  Serious: Yes (Hospitalization)
  Sender: FDA-Public Use
  Company Number: TR-US-EMD SERONO, INC.-7147126

PATIENT
  Sex: Female
  Weight: 59 kg

DRUGS (2)
  1. REBIF [Suspect]
     Indication: RELAPSING-REMITTING MULTIPLE SCLEROSIS
     Route: 058
     Dates: start: 20090601, end: 20120523
  2. IBRUPROFEN [Suspect]
     Indication: ANALGESIC THERAPY
     Route: 048
     Dates: start: 20110901, end: 20120523

REACTIONS (1)
  - HEPATIC ENZYME INCREASED [None]
